FAERS Safety Report 8330512-X (Version None)
Quarter: 2012Q2

REPORT INFORMATION
  Report Type: 
  Country: None (occurrence: None)
  Receive Date: 20120502
  Receipt Date: 20120419
  Transmission Date: 20120825
  Serious: Yes (Hospitalization)
  Sender: FDA-Public Use
  Company Number: JP-MYLANLABS-2012S1008589

PATIENT
  Age: 48 Year
  Sex: Male

DRUGS (4)
  1. MEROPENEM [Concomitant]
     Route: 042
  2. VANCOMYCIN [Suspect]
     Indication: BRAIN ABSCESS
     Dosage: 20MG QD
  3. MEROPENEM [Concomitant]
     Route: 042
  4. VANCOMYCIN [Concomitant]
     Route: 042

REACTIONS (4)
  - EPENDYMITIS [None]
  - CENTRAL NERVOUS SYSTEM LESION [None]
  - BRAIN OEDEMA [None]
  - TREATMENT FAILURE [None]
